FAERS Safety Report 4609062-X (Version None)
Quarter: 2005Q1

REPORT INFORMATION
  Report Type: 
  Country: None (occurrence: None)
  Receive Date: 20050311
  Receipt Date: 20050307
  Transmission Date: 20050727
  Serious: Yes (Hospitalization, Other)
  Sender: FDA-Public Use
  Company Number: KII-2005-0015390

PATIENT
  Age: 23 Year
  Sex: Male

DRUGS (4)
  1. MORPHINE SULFATE [Suspect]
  2. BENZODIAZEPINE DERIVATIVES [Suspect]
  3. COCAINE (COCAINE) [Suspect]
  4. ETHANOL(ETHANOL) [Suspect]

REACTIONS (8)
  - ALCOHOL USE [None]
  - COMA [None]
  - ELECTROCARDIOGRAM PR PROLONGATION [None]
  - HEART RATE DECREASED [None]
  - MULTIPLE DRUG OVERDOSE [None]
  - POLYSUBSTANCE ABUSE [None]
  - RESPIRATORY ARREST [None]
  - SELF-MEDICATION [None]
